FAERS Safety Report 7505597-0 (Version None)
Quarter: 2011Q2

REPORT INFORMATION
  Report Type: 
  Country: None (occurrence: None)
  Receive Date: 20110526
  Receipt Date: 20110520
  Transmission Date: 20111010
  Serious: Yes (Other)
  Sender: FDA-Public Use
  Company Number: BE-PFIZER INC-2011109676

PATIENT
  Sex: Male

DRUGS (2)
  1. TIMABAK [Concomitant]
     Route: 047
  2. XALATAN [Suspect]
     Route: 047

REACTIONS (2)
  - CATARACT OPERATION [None]
  - ANTERIOR CHAMBER INFLAMMATION [None]
